FAERS Safety Report 4415639-7 (Version None)
Quarter: 2004Q3

REPORT INFORMATION
  Report Type: 
  Country: None (occurrence: None)
  Receive Date: 20040730
  Receipt Date: 20040721
  Transmission Date: 20050211
  Serious: Yes (Hospitalization)
  Sender: FDA-Public Use
  Company Number: 2004UW15424

PATIENT
  Age: 12 Year
  Sex: Male

DRUGS (5)
  1. SEROQUEL [Suspect]
     Dosage: 700- MG DAILY PO
     Route: 048
     Dates: start: 20030812, end: 20040701
  2. TEGRETOL [Concomitant]
  3. ATIVAN [Suspect]
  4. BUSPAR [Suspect]
  5. STRATTERA [Concomitant]

REACTIONS (2)
  - ABNORMAL BEHAVIOUR [None]
  - BLOOD GLUCOSE INCREASED [None]
